FAERS Safety Report 17350910 (Version 1)
Quarter: 2020Q1

REPORT INFORMATION
  Report Type: Spontaneous
  Country: US (occurrence: US)
  Receive Date: 20200130
  Receipt Date: 20200130
  Transmission Date: 20200409
  Serious: Yes (Life-Threatening, Hospitalization, Other)
  Sender: FDA-Public Use
  Company Number: US-MICRO LABS LIMITED-ML2020-00282

PATIENT
  Age: 58 Year
  Sex: Female

DRUGS (5)
  1. LIDOCAINE. [Suspect]
     Active Substance: LIDOCAINE
     Dosage: ADDITIONAL TOPICAL LIDOCAINE DURING BRONCHOSCOPY (TOTAL 14 ML)
     Route: 061
  2. MIDAZOLAM HYDROCHLORIDE. [Suspect]
     Active Substance: MIDAZOLAM HYDROCHLORIDE
     Indication: SEDATIVE THERAPY
     Dosage: 3MG GIVEN OVER TEN MINUTES
  3. DIPHENHYDRAMINE HYDROCHLORIDE. [Suspect]
     Active Substance: DIPHENHYDRAMINE HYDROCHLORIDE
     Indication: SEDATIVE THERAPY
     Dosage: 25MG GIVEN OVER TEN MINUTES
  4. FENTANYL. [Suspect]
     Active Substance: FENTANYL
     Indication: SEDATIVE THERAPY
     Dosage: 75MCG GIVEN OVER TEN MINUTES
  5. LIDOCAINE. [Suspect]
     Active Substance: LIDOCAINE
     Dosage: 1 PERCENT NEBULIZED LIDOCAINE

REACTIONS (2)
  - Generalised tonic-clonic seizure [Recovered/Resolved]
  - Pulmonary oedema [Recovered/Resolved]
